FAERS Safety Report 5475942-9 (Version None)
Quarter: 2007Q4

REPORT INFORMATION
  Report Type: 
  Country: None (occurrence: None)
  Receive Date: 20071003
  Receipt Date: 20070926
  Transmission Date: 20080405
  Serious: Yes (Hospitalization)
  Sender: FDA-Public Use
  Company Number: JP-AVENTIS-200712593JP

PATIENT
  Age: 25 Year
  Sex: Female

DRUGS (2)
  1. INSULIN GLARGINE [Suspect]
     Route: 058
  2. INTERMEDIATE-ACTING INSULIN [Concomitant]

REACTIONS (6)
  - DRUG EXPOSURE DURING PREGNANCY [None]
  - INFLAMMATION [None]
  - INTRAUTERINE INFECTION [None]
  - OBSTRUCTED LABOUR [None]
  - PREMATURE RUPTURE OF MEMBRANES [None]
  - PYREXIA [None]
